FAERS Safety Report 18392723 (Version 1)
Quarter: 2020Q4

REPORT INFORMATION
  Report Type: Spontaneous
  Country: AU (occurrence: AU)
  Receive Date: 20201016
  Receipt Date: 20201016
  Transmission Date: 20210114
  Serious: Yes (Other)
  Sender: FDA-Public Use
  Company Number: AU-JNJFOC-20201014284

PATIENT
  Age: 43 Year
  Sex: Male
  Weight: 98 kg

DRUGS (15)
  1. RISPERDAL CONSTA [Suspect]
     Active Substance: RISPERIDONE
  2. RISPERDAL CONSTA [Suspect]
     Active Substance: RISPERIDONE
  3. PANTOPRAZOLE [Suspect]
     Active Substance: PANTOPRAZOLE
     Indication: PRODUCT USED FOR UNKNOWN INDICATION
     Route: 065
  4. RISPERDAL CONSTA [Suspect]
     Active Substance: RISPERIDONE
  5. CLOPINE [Suspect]
     Active Substance: CLOZAPINE
     Route: 048
  6. FENOFIBRATE. [Suspect]
     Active Substance: FENOFIBRATE
     Indication: DYSLIPIDAEMIA
     Route: 065
  7. COLECALCIFEROL [Suspect]
     Active Substance: CHOLECALCIFEROL
     Indication: PRODUCT USED FOR UNKNOWN INDICATION
     Route: 065
  8. COLECALCIFEROL [Suspect]
     Active Substance: CHOLECALCIFEROL
     Route: 065
  9. PALIPERIDONE. [Concomitant]
     Active Substance: PALIPERIDONE
     Indication: PRODUCT USED FOR UNKNOWN INDICATION
     Route: 065
  10. RISPERDAL CONSTA [Suspect]
     Active Substance: RISPERIDONE
     Indication: PRODUCT USED FOR UNKNOWN INDICATION
     Dosage: FORTNIGHTLY
     Route: 030
  11. CLOPINE [Suspect]
     Active Substance: CLOZAPINE
     Indication: SCHIZOPHRENIA
     Route: 048
     Dates: start: 2006
  12. ATORVASTATIN [Suspect]
     Active Substance: ATORVASTATIN
     Indication: DYSLIPIDAEMIA
     Route: 065
  13. CLEARLAX [Suspect]
     Active Substance: POLYETHYLENE GLYCOL 3350
     Indication: PRODUCT USED FOR UNKNOWN INDICATION
     Route: 065
  14. CLOPINE [Suspect]
     Active Substance: CLOZAPINE
     Route: 048
     Dates: start: 20150311
  15. CLOPINE [Suspect]
     Active Substance: CLOZAPINE
     Route: 048

REACTIONS (17)
  - Vomiting [Unknown]
  - High density lipoprotein decreased [Unknown]
  - Left ventricular hypertrophy [Unknown]
  - Systolic dysfunction [Unknown]
  - Echocardiogram abnormal [Unknown]
  - Blood cholesterol increased [Unknown]
  - Withdrawal syndrome [Unknown]
  - Sedation complication [Unknown]
  - Dizziness postural [Unknown]
  - Hypertriglyceridaemia [Unknown]
  - Tachycardia [Unknown]
  - Congestive cardiomyopathy [Unknown]
  - Neutrophilia [Unknown]
  - Orthostatic hypotension [Unknown]
  - Constipation [Unknown]
  - Nausea [Unknown]
  - Impaired fasting glucose [Unknown]

NARRATIVE: CASE EVENT DATE: 201812
